FAERS Safety Report 19826660 (Version 2)
Quarter: 2021Q4

REPORT INFORMATION
  Report Type: Spontaneous
  Country: US (occurrence: US)
  Receive Date: 20210914
  Receipt Date: 20211118
  Transmission Date: 20220303
  Serious: No
  Sender: FDA-Public Use
  Company Number: US-APOTEX-2021AP028577

PATIENT
  Sex: Female

DRUGS (2)
  1. TRAVOPROST [Suspect]
     Active Substance: TRAVOPROST
     Indication: Glaucoma
     Dosage: 2 GTT DROPS, QD (1 DROP IN EACH EYE DAILY)
     Route: 047
     Dates: start: 20210726, end: 202108
  2. ZYRTEC [Concomitant]
     Active Substance: CETIRIZINE HYDROCHLORIDE
     Indication: Hypersensitivity
     Dosage: UNKIF NEEDED (IF FLUSHED AND ALLERGIES)
     Route: 065

REACTIONS (4)
  - Flushing [Recovered/Resolved]
  - Genital burning sensation [Recovered/Resolved]
  - Burning sensation [Recovered/Resolved]
  - Pruritus [Recovered/Resolved]

NARRATIVE: CASE EVENT DATE: 20210701
